FAERS Safety Report 8170616-8 (Version None)
Quarter: 2012Q1

REPORT INFORMATION
  Report Type: 
  Country: None (occurrence: None)
  Receive Date: 20120104
  Receipt Date: 20111006
  Transmission Date: 20120608
  Serious: No
  Sender: FDA-Public Use
  Company Number: 2011HGS-002615

PATIENT
  Age: 27 Year
  Sex: Female
  Weight: 101.6057 kg

DRUGS (13)
  1. XANAX [Concomitant]
  2. ASPIRIN [Concomitant]
  3. GABAPENTIN [Concomitant]
  4. BENLYSTA [Suspect]
     Indication: SYSTEMIC LUPUS ERYTHEMATOSUS
     Dosage: 1000 MG, 1 IN 28 D, INTRAVENOUS
     Route: 042
     Dates: start: 20110413
  5. CALCIUM WITH VITMAIN D (CALCIUM WITH VITAMIN D) [Concomitant]
  6. CYMBALTA [Concomitant]
  7. CELLCEPT [Concomitant]
  8. NEXIUM [Concomitant]
  9. MELOXICAM [Concomitant]
  10. PLAQUENIL [Concomitant]
  11. BACLOFEN [Concomitant]
  12. AMITRIPTYLINE HCL [Concomitant]
  13. LIDODERM [Concomitant]

REACTIONS (2)
  - INSOMNIA [None]
  - GASTROOESOPHAGEAL REFLUX DISEASE [None]
